FAERS Safety Report 8961146 (Version 1)
Quarter: 2012Q4

REPORT INFORMATION
  Report Type: Report from Study
  Country: US (occurrence: US)
  Receive Date: 20121212
  Receipt Date: 20121212
  Transmission Date: 20130627
  Serious: Yes (Hospitalization, Disabling, Other)
  Sender: FDA-Public Use
  Company Number: US-GLAXOSMITHKLINE-A1004578A

PATIENT
  Age: 67 Year
  Sex: Male
  Weight: 103.9 kg

DRUGS (13)
  1. DYAZIDE [Suspect]
     Indication: DEAFNESS
     Dates: start: 20100219, end: 20100316
  2. BLINDED TRIAL MEDICATION [Concomitant]
     Indication: CARDIOVASCULAR DISORDER
     Dosage: 2TABS Per day
     Dates: start: 20090119
  3. ASPIRIN [Concomitant]
     Dates: start: 20081103
  4. CLOPIDOGREL BISULFATE [Concomitant]
     Dates: start: 20081103
  5. METOPROLOL [Concomitant]
     Dates: start: 20081102, end: 20100330
  6. ROSUVASTATIN [Concomitant]
     Dates: start: 2007
  7. TAMSULOSIN [Concomitant]
     Dates: start: 2004
  8. LORATADINE [Concomitant]
     Dates: start: 2005
  9. NITROGLYCERIN [Concomitant]
     Dates: start: 20081102
  10. BUDESONIDE [Concomitant]
     Dates: start: 2004
  11. TADALAFIL [Concomitant]
     Dates: start: 200803
  12. LISINOPRIL [Concomitant]
     Dates: start: 20090602
  13. METOPROLOL [Concomitant]
     Dates: start: 20100330

REACTIONS (2)
  - Deafness unilateral [Recovered/Resolved with Sequelae]
  - Syncope [Recovered/Resolved]
